FAERS Safety Report 5757952-7 (Version None)
Quarter: 2008Q2

REPORT INFORMATION
  Report Type: 
  Country: None (occurrence: None)
  Receive Date: 20080602
  Receipt Date: 20080602
  Transmission Date: 20081010
  Serious: Yes (Other)
  Sender: FDA-Public Use
  Company Number: None

PATIENT
  Age: 64 Year
  Sex: Male
  Weight: 72.5755 kg

DRUGS (2)
  1. LEVAQUIN [Suspect]
     Indication: INFLUENZA LIKE ILLNESS
     Dosage: 1 TABLET DAILY PO
     Route: 048
     Dates: start: 20070301, end: 20070306
  2. LEVAQUIN [Suspect]
     Indication: NASOPHARYNGITIS
     Dosage: 1 TABLET DAILY PO
     Route: 048
     Dates: start: 20070301, end: 20070306

REACTIONS (8)
  - GAIT DISTURBANCE [None]
  - HAEMORRHAGE [None]
  - HYPOAESTHESIA [None]
  - JOINT SWELLING [None]
  - OEDEMA PERIPHERAL [None]
  - PAIN [None]
  - SKIN DISCOLOURATION [None]
  - TENDON DISORDER [None]
